FAERS Safety Report 19986535 (Version 1)
Quarter: 2021Q4

REPORT INFORMATION
  Report Type: Spontaneous
  Country: CN (occurrence: CN)
  Receive Date: 20211022
  Receipt Date: 20211022
  Transmission Date: 20220303
  Serious: Yes (Other)
  Sender: FDA-Public Use
  Company Number: 2021A775630

PATIENT
  Age: 13972 Day
  Sex: Female

DRUGS (2)
  1. BUDESONIDE [Suspect]
     Active Substance: BUDESONIDE
     Indication: Cough
     Route: 055
     Dates: start: 20210913, end: 20210913
  2. BRICANYL [Suspect]
     Active Substance: TERBUTALINE SULFATE
     Indication: Cough
     Route: 055
     Dates: start: 20210913, end: 20210913

REACTIONS (2)
  - Tachycardia [Recovered/Resolved]
  - Cyanosis [Recovered/Resolved]

NARRATIVE: CASE EVENT DATE: 20210913
